FAERS Safety Report 8823165 (Version 1)
Quarter: 2012Q4

REPORT INFORMATION
  Report Type: 
  Country: US (occurrence: US)
  Receive Date: 20121003
  Receipt Date: 20121003
  Transmission Date: 20130627
  Serious: Yes (Other)
  Sender: FDA-Public Use
  Company Number: US-PFIZER INC-2012241786

PATIENT
  Age: 74 Year
  Sex: Female
  Weight: 58.5 kg

DRUGS (6)
  1. LIPITOR [Suspect]
     Indication: BLOOD CHOLESTEROL INCREASED
     Dosage: UNK, daily
     Dates: start: 1997, end: 2012
  2. CELEBREX [Suspect]
     Indication: ARTHRITIS
     Dosage: 200 mg, daily
  3. CRESTOR [Suspect]
     Indication: BLOOD CHOLESTEROL INCREASED
     Dosage: 10 mg, daily
     Dates: start: 2012
  4. ASPIRIN [Concomitant]
     Indication: HYPERTENSION
     Dosage: 81 mg, daily
  5. AZOR [Concomitant]
     Indication: HYPERTENSION
     Dosage: [amlodipine besilate 5 mg] / [olmesartan medoxomil 20 mg], daily
  6. METOPROLOL SUCCINATE [Concomitant]
     Indication: HYPERTENSION
     Dosage: 50 mg, daily

REACTIONS (6)
  - Arthropathy [Unknown]
  - Musculoskeletal stiffness [Not Recovered/Not Resolved]
  - Joint stiffness [Not Recovered/Not Resolved]
  - Weight increased [Unknown]
  - Dizziness [Unknown]
  - Blood cholesterol increased [Unknown]
